FAERS Safety Report 4855900-5 (Version None)
Quarter: 2005Q4

REPORT INFORMATION
  Report Type: 
  Country: None (occurrence: None)
  Receive Date: 20051216
  Receipt Date: 20051214
  Transmission Date: 20060501
  Serious: Yes (Other)
  Sender: FDA-Public Use
  Company Number: US-GLAXOSMITHKLINE-A0585854A

PATIENT
  Age: 31 Year
  Sex: Female

DRUGS (4)
  1. LAMICTAL [Suspect]
     Indication: ANXIETY
     Dosage: 25MG PER DAY
     Route: 048
     Dates: start: 20051121
  2. NO CONCURRENT MEDICATION [Concomitant]
  3. MARIJUANA [Concomitant]
  4. TOBACCO [Concomitant]

REACTIONS (8)
  - BURNING SENSATION [None]
  - DEPRESSED MOOD [None]
  - EMOTIONAL DISORDER [None]
  - FEELING COLD [None]
  - PARAESTHESIA [None]
  - SMOKER [None]
  - SUICIDAL IDEATION [None]
  - TREMOR [None]
